FAERS Safety Report 11101450 (Version 2)
Quarter: 2015Q2

REPORT INFORMATION
  Report Type: Spontaneous
  Country: US (occurrence: US)
  Receive Date: 20150508
  Receipt Date: 20150603
  Transmission Date: 20150821
  Serious: No
  Sender: FDA-Public Use
  Company Number: US-PFIZER INC-2015155202

PATIENT
  Age: 49 Year
  Sex: Male
  Weight: 93 kg

DRUGS (4)
  1. VIAGRA [Suspect]
     Active Substance: SILDENAFIL CITRATE
     Indication: ERECTILE DYSFUNCTION
     Dosage: 50 MG, AS NEEDED, TAKEN AS ONE HALF OF A 100MG TABLET
     Dates: start: 2012
  2. L-ARGININE /00126101/ [Suspect]
     Active Substance: ARGININE
     Indication: SUPPLEMENTATION THERAPY
     Dosage: UNK
  3. L-CITRULLINE [Suspect]
     Active Substance: CITRULLINE
     Indication: SUPPLEMENTATION THERAPY
     Dosage: UNK
  4. PYCNOGENOL [Suspect]
     Active Substance: DIETARY SUPPLEMENT
     Indication: SUPPLEMENTATION THERAPY
     Dosage: UNK

REACTIONS (2)
  - Blood oestrogen increased [Unknown]
  - Drug ineffective [Unknown]
